FAERS Safety Report 4853942-7 (Version None)
Quarter: 2005Q4

REPORT INFORMATION
  Report Type: 
  Country: None (occurrence: None)
  Receive Date: 20051213
  Receipt Date: 20051128
  Transmission Date: 20060501
  Serious: Yes (Life-Threatening)
  Sender: FDA-Public Use
  Company Number: MK200512-0004-1

PATIENT
  Age: 55 Year
  Sex: Female

DRUGS (1)
  1. NEUTROSPEC [Suspect]
     Indication: SEPSIS
     Dosage: 19 MCI, ONE TIME, IV
     Route: 042
     Dates: start: 20051124, end: 20051124

REACTIONS (6)
  - APHASIA [None]
  - BLOOD PRESSURE DECREASED [None]
  - DYSPNOEA [None]
  - FLUSHING [None]
  - OXYGEN SATURATION DECREASED [None]
  - PALLOR [None]
